FAERS Safety Report 22626732 (Version 1)
Quarter: 2023Q2

REPORT INFORMATION
  Report Type: Spontaneous
  Country: US (occurrence: US)
  Receive Date: 20230622
  Receipt Date: 20230622
  Transmission Date: 20230721
  Serious: No
  Sender: FDA-Public Use
  Company Number: US-JNJFOC-20230635063

PATIENT
  Age: 82 Year
  Sex: Male
  Weight: 76 kg

DRUGS (2)
  1. DARZALEX FASPRO [Suspect]
     Active Substance: DARATUMUMAB\HYALURONIDASE-FIHJ
     Indication: Product used for unknown indication
     Route: 058
     Dates: start: 20230613
  2. VELCADE [Suspect]
     Active Substance: BORTEZOMIB

REACTIONS (3)
  - Oxygen saturation decreased [Unknown]
  - Back pain [Unknown]
  - Chills [Unknown]

NARRATIVE: CASE EVENT DATE: 20230613
